FAERS Safety Report 15656122 (Version 3)
Quarter: 2025Q2

REPORT INFORMATION
  Report Type: Spontaneous
  Country: CA (occurrence: CA)
  Receive Date: 20181126
  Receipt Date: 20250409
  Transmission Date: 20250717
  Serious: Yes (Other)
  Sender: MYLAN
  Company Number: CA-PFIZER INC-2018477388

PATIENT
  Sex: Male

DRUGS (40)
  1. VENLAFAXINE HYDROCHLORIDE [Suspect]
     Active Substance: VENLAFAXINE HYDROCHLORIDE
     Indication: Product used for unknown indication
  2. VENLAFAXINE HYDROCHLORIDE [Suspect]
     Active Substance: VENLAFAXINE HYDROCHLORIDE
     Route: 048
  3. VENLAFAXINE HYDROCHLORIDE [Suspect]
     Active Substance: VENLAFAXINE HYDROCHLORIDE
     Route: 048
  4. VENLAFAXINE HYDROCHLORIDE [Suspect]
     Active Substance: VENLAFAXINE HYDROCHLORIDE
  5. VENLAFAXINE [Suspect]
     Active Substance: VENLAFAXINE HYDROCHLORIDE
     Indication: Product used for unknown indication
  6. VENLAFAXINE [Suspect]
     Active Substance: VENLAFAXINE HYDROCHLORIDE
     Route: 048
  7. VENLAFAXINE [Suspect]
     Active Substance: VENLAFAXINE HYDROCHLORIDE
     Route: 048
  8. VENLAFAXINE [Suspect]
     Active Substance: VENLAFAXINE HYDROCHLORIDE
  9. MIDAZOLAM [Suspect]
     Active Substance: MIDAZOLAM
     Indication: Product used for unknown indication
  10. MIDAZOLAM [Suspect]
     Active Substance: MIDAZOLAM
     Route: 048
  11. MIDAZOLAM [Suspect]
     Active Substance: MIDAZOLAM
     Route: 048
  12. MIDAZOLAM [Suspect]
     Active Substance: MIDAZOLAM
  13. MORPHINE [Suspect]
     Active Substance: MORPHINE
     Indication: Product used for unknown indication
  14. MORPHINE [Suspect]
     Active Substance: MORPHINE
     Route: 048
  15. MORPHINE [Suspect]
     Active Substance: MORPHINE
     Route: 048
  16. MORPHINE [Suspect]
     Active Substance: MORPHINE
  17. CYCLOBENZAPRINE [Suspect]
     Active Substance: CYCLOBENZAPRINE
     Indication: Product used for unknown indication
  18. CYCLOBENZAPRINE [Suspect]
     Active Substance: CYCLOBENZAPRINE
     Route: 048
  19. CYCLOBENZAPRINE [Suspect]
     Active Substance: CYCLOBENZAPRINE
     Route: 048
  20. CYCLOBENZAPRINE [Suspect]
     Active Substance: CYCLOBENZAPRINE
  21. DIPHENHYDRAMINE [Suspect]
     Active Substance: DIPHENHYDRAMINE
     Indication: Product used for unknown indication
  22. DIPHENHYDRAMINE [Suspect]
     Active Substance: DIPHENHYDRAMINE
     Route: 048
  23. DIPHENHYDRAMINE [Suspect]
     Active Substance: DIPHENHYDRAMINE
     Route: 048
  24. DIPHENHYDRAMINE [Suspect]
     Active Substance: DIPHENHYDRAMINE
  25. FLECAINIDE [Suspect]
     Active Substance: FLECAINIDE
     Indication: Product used for unknown indication
  26. FLECAINIDE [Suspect]
     Active Substance: FLECAINIDE
     Route: 048
  27. FLECAINIDE [Suspect]
     Active Substance: FLECAINIDE
     Route: 048
  28. FLECAINIDE [Suspect]
     Active Substance: FLECAINIDE
  29. MIDAZOLAM [Suspect]
     Active Substance: MIDAZOLAM
     Indication: Product used for unknown indication
  30. MIDAZOLAM [Suspect]
     Active Substance: MIDAZOLAM
     Route: 048
  31. MIDAZOLAM [Suspect]
     Active Substance: MIDAZOLAM
     Route: 048
  32. MIDAZOLAM [Suspect]
     Active Substance: MIDAZOLAM
  33. CYCLOBENZAPRINE [Suspect]
     Active Substance: CYCLOBENZAPRINE
     Indication: Product used for unknown indication
  34. CYCLOBENZAPRINE [Suspect]
     Active Substance: CYCLOBENZAPRINE
     Route: 065
  35. CYCLOBENZAPRINE [Suspect]
     Active Substance: CYCLOBENZAPRINE
     Route: 065
  36. CYCLOBENZAPRINE [Suspect]
     Active Substance: CYCLOBENZAPRINE
  37. FLECAINIDE [Suspect]
     Active Substance: FLECAINIDE
     Indication: Product used for unknown indication
  38. FLECAINIDE [Suspect]
     Active Substance: FLECAINIDE
     Route: 048
  39. FLECAINIDE [Suspect]
     Active Substance: FLECAINIDE
     Route: 048
  40. FLECAINIDE [Suspect]
     Active Substance: FLECAINIDE

REACTIONS (3)
  - Overdose [Unknown]
  - Seizure [Unknown]
  - Product use issue [Unknown]
